FAERS Safety Report 19102546 (Version 1)
Quarter: 2021Q2

REPORT INFORMATION
  Report Type: Spontaneous
  Country: US (occurrence: US)
  Receive Date: 20210407
  Receipt Date: 20210407
  Transmission Date: 20210717
  Serious: No
  Sender: FDA-Public Use
  Company Number: None

PATIENT
  Age: 48 Year
  Sex: Male
  Weight: 80 kg

DRUGS (7)
  1. GLEOSTINE [Suspect]
     Active Substance: LOMUSTINE
     Indication: BRAIN NEOPLASM MALIGNANT
     Dosage: ?          OTHER FREQUENCY:ON DAY 1 OF 6 WEEK;?
     Route: 048
     Dates: start: 20201119, end: 20210407
  2. TYLENOL [Concomitant]
     Active Substance: ACETAMINOPHEN
  3. PROCARDIA XL [Concomitant]
     Active Substance: NIFEDIPINE
  4. DOCUSATE SODIUM. [Concomitant]
     Active Substance: DOCUSATE SODIUM
  5. SILDENAFIL CITRATE. [Concomitant]
     Active Substance: SILDENAFIL CITRATE
  6. VINCRISTINE SULFATE. [Concomitant]
     Active Substance: VINCRISTINE SULFATE
  7. GLEOSTINE [Suspect]
     Active Substance: LOMUSTINE
     Indication: BRAIN NEOPLASM MALIGNANT
     Dosage: ?          OTHER FREQUENCY:ON DAY 1 OF 6 WEEK;?
     Route: 048
     Dates: start: 20201119, end: 20210407

REACTIONS (1)
  - Disease progression [None]

NARRATIVE: CASE EVENT DATE: 20210407
